FAERS Safety Report 19649709 (Version 1)
Quarter: 2021Q3

REPORT INFORMATION
  Report Type: Report from Study
  Country: None (occurrence: US)
  Receive Date: 20210803
  Receipt Date: 20210803
  Transmission Date: 20211014
  Serious: Yes (Other)
  Sender: FDA-Public Use
  Company Number: US-ABBVIE-21K-163-4011518-00

PATIENT
  Sex: Female

DRUGS (1)
  1. HUMIRA [Suspect]
     Active Substance: ADALIMUMAB
     Indication: COLITIS ULCERATIVE
     Route: 058

REACTIONS (8)
  - Trigger finger [Not Recovered/Not Resolved]
  - Postoperative wound infection [Recovered/Resolved]
  - Post procedural infection [Recovered/Resolved]
  - Carpal tunnel syndrome [Unknown]
  - Knee arthroplasty [Recovered/Resolved]
  - Cellulitis [Recovered/Resolved]
  - Arthritis infective [Recovered/Resolved]
  - Tooth extraction [Recovered/Resolved]

NARRATIVE: CASE EVENT DATE: 2008
